FAERS Safety Report 4345873-6 (Version None)
Quarter: 2004Q2

REPORT INFORMATION
  Report Type: 
  Country: None (occurrence: None)
  Receive Date: 20040421
  Receipt Date: 20040412
  Transmission Date: 20050107
  Serious: Yes (Death)
  Sender: FDA-Public Use
  Company Number: USA-2004-0012972

PATIENT
  Age: 85 Year
  Sex: Male
  Weight: 72.6 kg

DRUGS (11)
  1. OXYCONTIN [Suspect]
     Indication: PAIN
     Dosage: SEE IMAGE
     Dates: start: 20010101
  2. OXYCONTIN [Suspect]
     Indication: PAIN
     Dosage: SEE IMAGE
     Dates: start: 20010101
  3. MORPHINE SULFATE [Suspect]
  4. PHENYTOIN [Suspect]
  5. ACETAMINOPHEN [Suspect]
  6. PHENYLPROPANOLAMINE HCL [Suspect]
  7. AMPHETAMINE SULFATE TAB [Suspect]
  8. SALICYLATES (SALICYLATES) [Suspect]
  9. PSEUDOEPHEDRINE HCL [Suspect]
  10. PREVACID [Concomitant]
  11. OXYGEN (OXYGEN) [Concomitant]

REACTIONS (19)
  - COMA [None]
  - COMPLETED SUICIDE [None]
  - CONDITION AGGRAVATED [None]
  - CONSTIPATION [None]
  - CORONARY ARTERY DISEASE [None]
  - CYST [None]
  - DRUG TOXICITY [None]
  - FEELING ABNORMAL [None]
  - GENERAL PHYSICAL HEALTH DETERIORATION [None]
  - HEPATIC FAILURE [None]
  - HEPATOMEGALY [None]
  - INTENTIONAL OVERDOSE [None]
  - LUNG ADENOCARCINOMA [None]
  - LUNG CANCER METASTATIC [None]
  - MALAISE [None]
  - METASTASES TO CENTRAL NERVOUS SYSTEM [None]
  - NEPHROSCLEROSIS [None]
  - RENAL FAILURE [None]
  - TREATMENT NONCOMPLIANCE [None]
